FAERS Safety Report 24667118 (Version 1)
Quarter: 2024Q4

REPORT INFORMATION
  Report Type: Report from Study
  Country: US (occurrence: US)
  Receive Date: 20241126
  Receipt Date: 20241126
  Transmission Date: 20250115
  Serious: Yes (Hospitalization)
  Sender: TAIHO ONCOLOGY INC
  Company Number: US-TAIHOP-2024-006245

PATIENT
  Age: 75 Year
  Sex: Male
  Weight: 97.5 kg

DRUGS (2)
  1. LONSURF [Suspect]
     Active Substance: TIPIRACIL HYDROCHLORIDE\TRIFLURIDINE
     Indication: Colon cancer
     Dosage: CYCLE 1-6?STRENGTH: 15 MG AND 20 MG
     Route: 048
     Dates: start: 20240605
  2. FRUZAQLA [Concomitant]
     Active Substance: FRUQUINTINIB
     Indication: Colon cancer
     Dosage: 5MG DAILY (21 DAYS ON / 7 DAYS OFF)?STOP DATE: AUG/2024 OR SEP/2024
     Dates: start: 20240605

REACTIONS (7)
  - Lung disorder [Unknown]
  - Pain in extremity [Unknown]
  - Fatigue [Unknown]
  - Abdominal pain [Unknown]
  - Decreased appetite [Unknown]
  - General physical health deterioration [Unknown]
  - Proteinuria [Unknown]

NARRATIVE: CASE EVENT DATE: 20241001
